FAERS Safety Report 5005328-2 (Version None)
Quarter: 2006Q2

REPORT INFORMATION
  Report Type: 
  Country: None (occurrence: None)
  Receive Date: 20060518
  Receipt Date: 20060511
  Transmission Date: 20061013
  Serious: Yes (Hospitalization)
  Sender: FDA-Public Use
  Company Number: FI-AVENTIS-200615167GDDC

PATIENT
  Age: 58 Year
  Sex: Female

DRUGS (8)
  1. AMARYL [Suspect]
     Indication: DIABETES MELLITUS NON-INSULIN-DEPENDENT
     Route: 048
     Dates: start: 20060124, end: 20060301
  2. ATROVENT [Concomitant]
     Route: 055
  3. SINGULAIR [Concomitant]
     Route: 048
  4. SERETIDE DISKUS [Concomitant]
     Route: 055
  5. VERPAMIL [Concomitant]
     Route: 048
  6. NITROSID RETARD [Concomitant]
     Dosage: DOSE: UNK
     Route: 048
  7. RETAFYLLIN [Concomitant]
     Dosage: DOSE: UNK
     Route: 048
  8. TILADE [Concomitant]
     Dosage: DOSE: UNK
     Route: 055

REACTIONS (1)
  - PURPURA [None]
